FAERS Safety Report 7216483-8 (Version None)
Quarter: 2011Q1

REPORT INFORMATION
  Report Type: 
  Country: None (occurrence: None)
  Receive Date: 20110107
  Receipt Date: 20101228
  Transmission Date: 20110831
  Serious: Yes (Hospitalization, Other)
  Sender: FDA-Public Use
  Company Number: PHHY2010FR89885

PATIENT
  Sex: Male

DRUGS (18)
  1. DEDROGYL [Concomitant]
     Dosage: 5 DRP, PER DAY
  2. SEVREDOL [Concomitant]
     Dosage: 10 MG,
  3. PREVISCAN [Concomitant]
  4. APROVEL [Concomitant]
  5. IMODIUM [Concomitant]
  6. HYPERIUM [Concomitant]
  7. TENORMIN [Concomitant]
  8. ACTONEL [Concomitant]
     Dosage: 35 MG, QW
  9. MAG 2 [Concomitant]
  10. COLCHIMAX [Suspect]
  11. ZANIDIP [Concomitant]
     Dosage: 20 MG, QD
  12. VITAMIN B-12 [Concomitant]
     Dosage: 1 DF, QMO
  13. DURAGESIC-100 [Concomitant]
     Dosage: 12 UG, /HR
  14. NEORAL [Suspect]
     Indication: PROPHYLAXIS AGAINST TRANSPLANT REJECTION
  15. CORTANCYL [Concomitant]
     Dosage: 5 MG, QD
  16. MOPRAL [Concomitant]
  17. IMUREL [Suspect]
     Dosage: 50 MG, QD
  18. OROCAL [Concomitant]

REACTIONS (27)
  - CYTOLYTIC HEPATITIS [None]
  - EXTENSOR PLANTAR RESPONSE [None]
  - OEDEMA PERIPHERAL [None]
  - BLOOD CREATININE INCREASED [None]
  - BLOOD UREA INCREASED [None]
  - BLOOD CREATINE PHOSPHOKINASE INCREASED [None]
  - DYSPNOEA [None]
  - HYPERTENSION [None]
  - HYPOTENSION [None]
  - PAIN [None]
  - GAMMA-GLUTAMYLTRANSFERASE INCREASED [None]
  - MUSCULAR WEAKNESS [None]
  - PO2 INCREASED [None]
  - HYPOREFLEXIA [None]
  - DIARRHOEA [None]
  - MYALGIA [None]
  - GOUT [None]
  - RHABDOMYOLYSIS [None]
  - ERYTHEMA [None]
  - ALANINE AMINOTRANSFERASE INCREASED [None]
  - CARBON DIOXIDE DECREASED [None]
  - LEUKOPENIA [None]
  - PCO2 DECREASED [None]
  - ABDOMINAL DISCOMFORT [None]
  - ASPARTATE AMINOTRANSFERASE INCREASED [None]
  - BLOOD BILIRUBIN INCREASED [None]
  - BILIRUBIN CONJUGATED INCREASED [None]
